FAERS Safety Report 7739574-1 (Version None)
Quarter: 2011Q3

REPORT INFORMATION
  Report Type: 
  Country: None (occurrence: None)
  Receive Date: 20110909
  Receipt Date: 20110825
  Transmission Date: 20111222
  Serious: Yes (Other)
  Sender: FDA-Public Use
  Company Number: US-WATSON-2011-13741

PATIENT
  Sex: Female
  Weight: 81 kg

DRUGS (5)
  1. THYROID TAB [Concomitant]
     Indication: THYROID THERAPY
     Dosage: UNK
     Route: 065
  2. IBUPROFEN [Suspect]
     Indication: PREMEDICATION
     Dosage: 600 MG, UNKNOWN
     Route: 048
     Dates: start: 20060701
  3. REBIF [Suspect]
     Indication: MULTIPLE SCLEROSIS
     Dosage: 44 MCG, 3 IN 1 WEEK
     Route: 058
     Dates: start: 20060713
  4. PREMPHASE (PREMARIN;CYCRIN 14/14) [Concomitant]
     Indication: PRODUCT USED FOR UNKNOWN INDICATION
     Dosage: UNK
     Route: 065
  5. BACLOFEN [Concomitant]
     Indication: PRODUCT USED FOR UNKNOWN INDICATION
     Dosage: UNK
     Route: 065
     Dates: start: 20060601

REACTIONS (4)
  - MENORRHAGIA [None]
  - ALOPECIA [None]
  - ARTHRALGIA [None]
  - THYROID FUNCTION TEST ABNORMAL [None]
